FAERS Safety Report 25622176 (Version 1)
Quarter: 2025Q3

REPORT INFORMATION
  Report Type: Spontaneous
  Country: US (occurrence: US)
  Receive Date: 20250730
  Receipt Date: 20250730
  Transmission Date: 20251021
  Serious: Yes (Hospitalization)
  Sender: STRIDES
  Company Number: US-STRIDES PHARMA UK LTD.-2025SP009410

PATIENT
  Age: 49 Year
  Sex: Female

DRUGS (2)
  1. PREDNISOLONE [Suspect]
     Active Substance: PREDNISOLONE
     Indication: Primary ciliary dyskinesia
     Route: 065
  2. CEFDINIR [Concomitant]
     Active Substance: CEFDINIR
     Indication: Antibiotic prophylaxis
     Route: 065

REACTIONS (2)
  - Disease progression [Unknown]
  - Off label use [Unknown]
